FAERS Safety Report 5405004-8 (Version None)
Quarter: 2007Q3

REPORT INFORMATION
  Report Type: 
  Country: None (occurrence: None)
  Receive Date: 20070801
  Receipt Date: 20070718
  Transmission Date: 20080115
  Serious: No
  Sender: FDA-Public Use
  Company Number: 016232

PATIENT
  Age: 55 Year
  Sex: Male

DRUGS (1)
  1. VIVACTIL(PROTRIPTYLINE HYDROCHLORIDE) TABLET, 5MG [Suspect]
     Indication: PAIN
     Dosage: 5 MG, TID, ORAL
     Route: 048
     Dates: start: 20070711

REACTIONS (4)
  - BENIGN PROSTATIC HYPERPLASIA [None]
  - CONDITION AGGRAVATED [None]
  - URETHRAL OBSTRUCTION [None]
  - URINARY RETENTION [None]
